FAERS Safety Report 5818727-3 (Version None)
Quarter: 2008Q3

REPORT INFORMATION
  Report Type: 
  Country: None (occurrence: None)
  Receive Date: 20080723
  Receipt Date: 20080717
  Transmission Date: 20090109
  Serious: Yes (Other)
  Sender: FDA-Public Use
  Company Number: GB-BAYER-200811243BNE

PATIENT
  Sex: Female

DRUGS (2)
  1. BETAFERON [Suspect]
     Indication: MULTIPLE SCLEROSIS
  2. RISPERIDONE [Concomitant]
     Indication: PSYCHOTIC DISORDER

REACTIONS (1)
  - PSYCHOTIC DISORDER [None]
